FAERS Safety Report 8287226-4 (Version None)
Quarter: 2012Q2

REPORT INFORMATION
  Report Type: 
  Country: None (occurrence: None)
  Receive Date: 20120416
  Receipt Date: 20120402
  Transmission Date: 20120825
  Serious: Yes (Other)
  Sender: FDA-Public Use
  Company Number: DE-RANBAXY-2012RR-55512

PATIENT
  Age: 55 Year
  Sex: Female
  Weight: 61.5 kg

DRUGS (1)
  1. ATORVASTATIN [Suspect]
     Indication: HYPERLIPIDAEMIA
     Dosage: 1 DF, QD, AT 22:00 PM
     Route: 048
     Dates: start: 20120319, end: 20120322

REACTIONS (6)
  - ABDOMINAL PAIN UPPER [None]
  - ANGINA PECTORIS [None]
  - DYSPNOEA [None]
  - NAUSEA [None]
  - ANXIETY [None]
  - VOMITING [None]
